FAERS Safety Report 9728928 (Version 2)
Quarter: 2013Q4

REPORT INFORMATION
  Report Type: Spontaneous
  Country: US (occurrence: US)
  Receive Date: 20131204
  Receipt Date: 20131219
  Transmission Date: 20140711
  Serious: No
  Sender: FDA-Public Use
  Company Number: US-BAXTER-2013BAX048097

PATIENT
  Sex: Female

DRUGS (7)
  1. DIANEAL PD2 [Suspect]
     Indication: PERITONEAL DIALYSIS
     Route: 033
  2. DIANEAL PD2 [Suspect]
     Indication: PERITONEAL DIALYSIS
     Route: 033
     Dates: start: 201209, end: 201211
  3. DIANEAL PD2 [Suspect]
     Route: 033
     Dates: start: 201302
  4. DIANEAL PD2 [Suspect]
     Route: 033
     Dates: start: 201311
  5. DIANEAL PD2 [Suspect]
     Indication: PERITONEAL DIALYSIS
     Route: 033
     Dates: start: 201209, end: 201211
  6. DIANEAL PD2 [Suspect]
     Route: 033
     Dates: start: 201302
  7. DIANEAL PD2 [Suspect]
     Route: 033
     Dates: start: 201311

REACTIONS (3)
  - Blood urea increased [Recovering/Resolving]
  - Postoperative adhesion [Not Recovered/Not Resolved]
  - Fluid overload [Recovering/Resolving]
